FAERS Safety Report 15371067 (Version 7)
Quarter: 2019Q2

REPORT INFORMATION
  Report Type: Spontaneous
  Country: US (occurrence: US)
  Receive Date: 20180911
  Receipt Date: 20190529
  Transmission Date: 20190711
  Serious: Yes (Other)
  Sender: FDA-Public Use
  Company Number: US-GLAXOSMITHKLINE-US2018GSK162720

PATIENT
  Sex: Female

DRUGS (3)
  1. PANTOPRAZOLE [Suspect]
     Active Substance: PANTOPRAZOLE
     Indication: GASTROOESOPHAGEAL REFLUX DISEASE
     Dosage: 40 MG, QD
     Route: 065
  2. PREVACID [Suspect]
     Active Substance: LANSOPRAZOLE
     Indication: PRODUCT USED FOR UNKNOWN INDICATION
     Dosage: UNK
     Route: 065
  3. OMEPRAZOLE. [Suspect]
     Active Substance: OMEPRAZOLE
     Indication: GASTROOESOPHAGEAL REFLUX DISEASE
     Dosage: 40 MG, QD
     Route: 065

REACTIONS (22)
  - Diabetic nephropathy [Unknown]
  - Hypertensive nephropathy [Unknown]
  - Urinary retention [Unknown]
  - Renal disorder [Unknown]
  - Tubulointerstitial nephritis [Unknown]
  - Nephropathy [Unknown]
  - Haematuria [Unknown]
  - Kidney fibrosis [Unknown]
  - Glomerulonephritis chronic [Unknown]
  - Urinary tract disorder [Unknown]
  - Renal artery stenosis [Unknown]
  - Focal segmental glomerulosclerosis [Unknown]
  - Renal tubular atrophy [Unknown]
  - Pollakiuria [Unknown]
  - Chronic kidney disease [Unknown]
  - Glomerulonephritis [Unknown]
  - Dysuria [Unknown]
  - Acute kidney injury [Unknown]
  - Proteinuria [Unknown]
  - Renal failure [Unknown]
  - Nephrotic syndrome [Unknown]
  - Renovascular hypertension [Unknown]
